FAERS Safety Report 4902320-0 (Version None)
Quarter: 2006Q1

REPORT INFORMATION
  Report Type: 
  Country: None (occurrence: None)
  Receive Date: 20060202
  Receipt Date: 20060126
  Transmission Date: 20060701
  Serious: Yes (Other)
  Sender: FDA-Public Use
  Company Number: 006505

PATIENT
  Sex: Female

DRUGS (7)
  1. NORDETTE-21 [Suspect]
  2. CYCLOPHOSPHAMIDE [Concomitant]
  3. AZATHIOPRINE [Concomitant]
  4. PREDNISONE [Concomitant]
  5. HYDRALAZINE HCL [Concomitant]
  6. NIFEDIPINE [Concomitant]
  7. FUROSEMIDE [Concomitant]

REACTIONS (3)
  - DRUG EXPOSURE DURING PREGNANCY [None]
  - PREGNANCY ON ORAL CONTRACEPTIVE [None]
  - STILLBIRTH [None]
